FAERS Safety Report 9867492 (Version 2)
Quarter: 2014Q2

REPORT INFORMATION
  Report Type: Spontaneous
  Country: IT (occurrence: IT)
  Receive Date: 20140204
  Receipt Date: 20140403
  Transmission Date: 20141212
  Serious: Yes (Other)
  Sender: FDA-Public Use
  Company Number: IT-009507513-1402ITA000400

PATIENT
  Age: 85 Year
  Sex: Male

DRUGS (8)
  1. NITROGLYCERIN [Suspect]
     Dosage: 10 MG, QD
     Route: 062
     Dates: start: 20130101
  2. LISINOPRIL [Suspect]
     Dosage: 10 MG DAILY
     Route: 048
     Dates: start: 20130101
  3. FUROSEMIDE [Suspect]
     Dosage: UNK
     Route: 048
     Dates: start: 20130101
  4. LUVION (CANRENONE) [Suspect]
     Dosage: TOTAL DAILY DOSE: 25 MG
     Route: 048
     Dates: start: 20130101
  5. TAMSULOSIN HYDROCHLORIDE [Suspect]
     Dosage: UNK
     Dates: start: 20130101, end: 20131213
  6. CARVEDILOL [Suspect]
     Dosage: TOTAL DAILY DOSE: 6.25 MG
     Route: 048
     Dates: start: 20130101, end: 20131216
  7. AMIODARONE HYDROCHLORIDE [Suspect]
     Dosage: 100 MG, UNK
     Dates: start: 20130101
  8. ASPIRIN [Concomitant]
     Dosage: 100 MG
     Route: 048

REACTIONS (1)
  - Syncope [Recovering/Resolving]
